FAERS Safety Report 19709940 (Version 2)
Quarter: 2021Q3

REPORT INFORMATION
  Report Type: Report from Study
  Country: CA (occurrence: CA)
  Receive Date: 20210816
  Receipt Date: 20210921
  Transmission Date: 20211014
  Serious: No
  Sender: FDA-Public Use
  Company Number: CA-BAUSCH-BL-2021-020537

PATIENT
  Age: 44 Year
  Sex: Male
  Weight: 92.16 kg

DRUGS (2)
  1. SILIQ [Suspect]
     Active Substance: BRODALUMAB
     Dosage: 210MG/1.5ML; EVERY 2 WEEKS
     Route: 058
     Dates: start: 2021
  2. SILIQ [Suspect]
     Active Substance: BRODALUMAB
     Indication: PSORIASIS
     Dosage: 210MG/1.5ML; WEEK 0 (27/MAY/2021), WEEK1 (03/JUN/2021), WEEK 2 (/JUN/2021)
     Route: 058
     Dates: start: 20210527, end: 202106

REACTIONS (2)
  - Gait disturbance [Recovering/Resolving]
  - Arthralgia [Recovering/Resolving]

NARRATIVE: CASE EVENT DATE: 20210528
